FAERS Safety Report 6616950-1 (Version None)
Quarter: 2010Q1

REPORT INFORMATION
  Report Type: 
  Country: None (occurrence: None)
  Receive Date: 20100301
  Receipt Date: 20100216
  Transmission Date: 20100710
  Serious: Yes (Hospitalization)
  Sender: FDA-Public Use
  Company Number: 003330

PATIENT
  Sex: Female
  Weight: 68 kg

DRUGS (5)
  1. LACOSAMIDE [Suspect]
     Indication: EPILEPSY
     Dosage: (400 MG BID ORAL)
     Route: 048
     Dates: start: 20090819
  2. KEPPRA [Concomitant]
  3. LUMINAL /00023201/ [Concomitant]
  4. OMEPRAZOL /00661203/ [Concomitant]
  5. VIGANTOLETTEN /00318501/ [Concomitant]

REACTIONS (2)
  - PARESIS [None]
  - STATUS EPILEPTICUS [None]
